FAERS Safety Report 7447448-9 (Version None)
Quarter: 2011Q2

REPORT INFORMATION
  Report Type: 
  Country: None (occurrence: None)
  Receive Date: 20110429
  Receipt Date: 20110208
  Transmission Date: 20111010
  Serious: No
  Sender: FDA-Public Use
  Company Number: US-ASTRAZENECA-2011SE07815

PATIENT
  Age: 39 Year
  Sex: Male

DRUGS (1)
  1. NEXIUM [Suspect]
     Dosage: HALF DOSE DAILY
     Route: 048

REACTIONS (2)
  - SLEEP DISORDER DUE TO GENERAL MEDICAL CONDITION, INSOMNIA TYPE [None]
  - INCORRECT DOSE ADMINISTERED [None]
